FAERS Safety Report 19518194 (Version 1)
Quarter: 2021Q3

REPORT INFORMATION
  Report Type: Spontaneous
  Country: GB (occurrence: GB)
  Receive Date: 20210712
  Receipt Date: 20210712
  Transmission Date: 20211014
  Serious: Yes (Disabling, Other)
  Sender: FDA-Public Use
  Company Number: GB-ORGANON-O2107GBR000258

PATIENT
  Age: 41 Year
  Sex: Male
  Weight: 67.12 kg

DRUGS (1)
  1. PROPECIA [Suspect]
     Active Substance: FINASTERIDE
     Indication: ILL-DEFINED DISORDER
     Dosage: 1 MG
     Route: 048

REACTIONS (1)
  - Adverse drug reaction [Not Recovered/Not Resolved]
